FAERS Safety Report 18799599 (Version 1)
Quarter: 2021Q1

REPORT INFORMATION
  Report Type: Spontaneous
  Country: US (occurrence: US)
  Receive Date: 20210127
  Receipt Date: 20210127
  Transmission Date: 20210419
  Serious: Yes (Life-Threatening)
  Sender: FDA-Public Use
  Company Number: None

PATIENT
  Age: 31 Year
  Sex: Female
  Weight: 64.9 kg

DRUGS (1)
  1. XCOPRI [Suspect]
     Active Substance: CENOBAMATE
     Indication: SEIZURE
     Route: 048
     Dates: start: 20201202, end: 20201214

REACTIONS (5)
  - Agitation [None]
  - Self-injurious ideation [None]
  - Suicidal ideation [None]
  - Irritability [None]
  - Therapy cessation [None]

NARRATIVE: CASE EVENT DATE: 20201211
